FAERS Safety Report 19450218 (Version 1)
Quarter: 2021Q2

REPORT INFORMATION
  Report Type: Spontaneous
  Country: US (occurrence: US)
  Receive Date: 20210622
  Receipt Date: 20210622
  Transmission Date: 20210717
  Serious: Yes (Other)
  Sender: FDA-Public Use
  Company Number: US-PFIZER INC-2021696402

PATIENT
  Age: 31 Year
  Sex: Male
  Weight: 87.09 kg

DRUGS (1)
  1. VIAGRA [Suspect]
     Active Substance: SILDENAFIL CITRATE
     Indication: ERECTILE DYSFUNCTION
     Dosage: 100 MG

REACTIONS (3)
  - Penile haemorrhage [Unknown]
  - Male orgasmic disorder [Unknown]
  - Penile pain [Unknown]
